FAERS Safety Report 9367258 (Version 2)
Quarter: 2013Q3

REPORT INFORMATION
  Report Type: Report from Study
  Country: US (occurrence: US)
  Receive Date: 20130625
  Receipt Date: 20130701
  Transmission Date: 20140515
  Serious: No
  Sender: FDA-Public Use
  Company Number: US-VERTEX PHARMACEUTICALS INC-2013-007408

PATIENT
  Sex: Female

DRUGS (4)
  1. VX-950 (TELAPREVIR) [Suspect]
     Indication: HEPATITIS C
     Dosage: UNK
     Route: 048
     Dates: start: 20121126, end: 20130218
  2. PEGASYS [Suspect]
     Indication: HEPATITIS C
     Dosage: UNK
     Dates: start: 20121126
  3. RIBAVIRIN [Suspect]
     Indication: HEPATITIS C
     Dosage: UNK
     Dates: start: 20121126
  4. RIBAVIRIN [Suspect]
     Dosage: UNK

REACTIONS (1)
  - Anaemia [Not Recovered/Not Resolved]
